FAERS Safety Report 7859522-3 (Version None)
Quarter: 2011Q4

REPORT INFORMATION
  Report Type: 
  Country: None (occurrence: None)
  Receive Date: 20111027
  Receipt Date: 20111017
  Transmission Date: 20120403
  Serious: Yes (Hospitalization)
  Sender: FDA-Public Use
  Company Number: US-BAYER-2011-028540

PATIENT
  Age: 19 Year
  Sex: Female
  Weight: 87.4 kg

DRUGS (4)
  1. YAZ [Suspect]
     Indication: ENDOMETRIOSIS
     Dosage: UNK
     Dates: start: 20070227, end: 20090606
  2. LUPRON [Concomitant]
     Route: 030
  3. KAPIDEX [Concomitant]
     Route: 048
  4. DEPO-PROVERA [Concomitant]

REACTIONS (5)
  - CHOLECYSTITIS ACUTE [None]
  - GALLBLADDER OPERATION [None]
  - ANXIETY [None]
  - PAIN [None]
  - INJURY [None]
